FAERS Safety Report 4553736-6 (Version None)
Quarter: 2005Q1

REPORT INFORMATION
  Report Type: 
  Country: None (occurrence: None)
  Receive Date: 20050113
  Receipt Date: 20050113
  Transmission Date: 20050727
  Serious: No
  Sender: FDA-Public Use
  Company Number: None

PATIENT
  Age: 3 Year
  Sex: Female

DRUGS (1)
  1. SINGULAIR [Suspect]

REACTIONS (3)
  - FORMICATION [None]
  - HALLUCINATION [None]
  - THINKING ABNORMAL [None]
